FAERS Safety Report 5199135-8 (Version None)
Quarter: 2007Q1

REPORT INFORMATION
  Report Type: 
  Country: None (occurrence: None)
  Receive Date: 20070104
  Receipt Date: 20061226
  Transmission Date: 20070707
  Serious: Yes (Hospitalization)
  Sender: FDA-Public Use
  Company Number: FR-PFIZER INC-2006156205

PATIENT
  Sex: Male
  Weight: 59 kg

DRUGS (6)
  1. SOLU-MEDROL [Suspect]
     Route: 042
     Dates: start: 20060911, end: 20060914
  2. CISPLATIN [Suspect]
     Route: 042
  3. APREPITANT [Suspect]
     Dosage: TEXT:1DF
     Route: 048
     Dates: start: 20060911, end: 20060913
  4. FLUOROURACIL [Suspect]
     Route: 042
     Dates: start: 20060911, end: 20060914
  5. PLITICAN [Concomitant]
     Route: 042
     Dates: start: 20060911, end: 20060914
  6. ONDANSETRON [Concomitant]
     Route: 042
     Dates: start: 20060911, end: 20060913

REACTIONS (1)
  - NEUTROPENIA [None]
